FAERS Safety Report 4589866-2 (Version None)
Quarter: 2005Q1

REPORT INFORMATION
  Report Type: 
  Country: None (occurrence: None)
  Receive Date: 20050125
  Receipt Date: 20040915
  Transmission Date: 20050727
  Serious: No
  Sender: FDA-Public Use
  Company Number: USA040874820

PATIENT
  Age: 75 Year
  Sex: Female
  Weight: 54 kg

DRUGS (4)
  1. FORTEO [Suspect]
     Indication: OSTEOPOROSIS
     Dates: start: 20040705
  2. SYNTHROID [Concomitant]
  3. VITAMINS NOS [Concomitant]
  4. CALCIUM WITH VITAMIN D [Concomitant]

REACTIONS (4)
  - ASTHENIA [None]
  - INJECTION SITE DISCOMFORT [None]
  - NAUSEA [None]
  - STOMACH DISCOMFORT [None]
